FAERS Safety Report 5320545-X (Version None)
Quarter: 2007Q1

REPORT INFORMATION
  Report Type: 
  Country: None (occurrence: None)
  Receive Date: 20070203
  Receipt Date: 20070104
  Transmission Date: 20070707
  Serious: Yes (Other)
  Sender: FDA-Public Use
  Company Number: 33365

PATIENT
  Sex: Female

DRUGS (1)
  1. PROPOFOL [Suspect]

REACTIONS (1)
  - DRUG INEFFECTIVE [None]
